FAERS Safety Report 6119456-1 (Version None)
Quarter: 2009Q1

REPORT INFORMATION
  Report Type: 
  Country: None (occurrence: None)
  Receive Date: 20090316
  Receipt Date: 20090306
  Transmission Date: 20090719
  Serious: Yes (Hospitalization)
  Sender: FDA-Public Use
  Company Number: A0773122A

PATIENT
  Age: 74 Year
  Sex: Female
  Weight: 100 kg

DRUGS (11)
  1. AVANDIA [Suspect]
     Indication: DIABETES MELLITUS
     Dosage: 4MG PER DAY
     Route: 048
     Dates: start: 20040819, end: 20071101
  2. DETROL LA [Concomitant]
  3. ALTACE [Concomitant]
  4. IRON [Concomitant]
  5. COZAAR [Concomitant]
  6. PLAVIX [Concomitant]
  7. NIASPAN [Concomitant]
  8. DIAZEPAM [Concomitant]
  9. DILTIAZEM [Concomitant]
  10. TRAMADOL HCL [Concomitant]
  11. LISINOPRIL [Concomitant]

REACTIONS (11)
  - ARRHYTHMIA [None]
  - BLOOD CHOLESTEROL INCREASED [None]
  - CHEST DISCOMFORT [None]
  - CHEST PAIN [None]
  - DEPRESSION [None]
  - DYSPNOEA [None]
  - FATIGUE [None]
  - HYPERTENSION [None]
  - MYOCARDIAL INFARCTION [None]
  - PERIPHERAL VASCULAR DISORDER [None]
  - THROMBOSIS [None]
